FAERS Safety Report 12800207 (Version 9)
Quarter: 2019Q2

REPORT INFORMATION
  Report Type: Spontaneous
  Country: US (occurrence: US)
  Receive Date: 20160930
  Receipt Date: 20190610
  Transmission Date: 20190711
  Serious: Yes (Hospitalization, Other)
  Sender: FDA-Public Use
  Company Number: US-PFIZER INC-2016293567

PATIENT
  Age: 63 Year
  Sex: Female
  Weight: 86 kg

DRUGS (12)
  1. LYRICA [Suspect]
     Active Substance: PREGABALIN
     Indication: NEUROPATHY PERIPHERAL
     Dosage: 75 MG, 3X/DAY
     Dates: start: 2015
  2. LYRICA [Suspect]
     Active Substance: PREGABALIN
     Dosage: 225 MG, 2X/DAY (10 IN THE MORNING AND 10 AT NIGHT)
     Dates: start: 2016
  3. METFORMIN [Concomitant]
     Active Substance: METFORMIN HYDROCHLORIDE
     Indication: DIABETES MELLITUS
     Dosage: 1000 MG, 2X/DAY (500 MG TWO TABLETS IN MORNING AND TWO AT NIGHT)
  4. JANUMET [Concomitant]
     Active Substance: METFORMIN HYDROCHLORIDE\SITAGLIPTIN PHOSPHATE
     Indication: HYPOGLYCAEMIA
     Dosage: UNK, 1X/DAY (METFORMIN HYDROCHLORIDE 50MG/SITAGLIPTIN PHOSPHATE MONOHYDRATE 1000MG)
     Dates: start: 2016
  5. AZOR [Concomitant]
     Active Substance: AMLODIPINE BESYLATE\OLMESARTAN MEDOXOMIL
     Indication: BLOOD GLUCOSE ABNORMAL
     Dosage: UNK, 1X/DAY ((AMLODIPINE BESILATE 5MG/OLMESARTAN MEDOXOMIL 40MG)
     Dates: start: 2016
  6. FERROUS SULFATE. [Concomitant]
     Active Substance: FERROUS SULFATE
     Indication: PNEUMONIA
  7. HCTZ [Concomitant]
     Active Substance: HYDROCHLOROTHIAZIDE
     Indication: BLOOD PRESSURE MEASUREMENT
  8. LYRICA [Suspect]
     Active Substance: PREGABALIN
     Dosage: 75 MG, 4X/DAY
  9. FERROUS SULFATE. [Concomitant]
     Active Substance: FERROUS SULFATE
     Indication: BLOOD COUNT ABNORMAL
     Dosage: 325 MG, 2X/DAY
     Route: 048
     Dates: start: 201608
  10. POTASSIUM [Concomitant]
     Active Substance: POTASSIUM
     Indication: HYPERNATRAEMIA
     Dosage: 20 MG, DAILY (EVERYDAY WITH FOOD)
     Route: 048
  11. LYRICA [Suspect]
     Active Substance: PREGABALIN
     Dosage: 150 MG, 3X/DAY
  12. HCTZ [Concomitant]
     Active Substance: HYDROCHLOROTHIAZIDE
     Indication: ELECTROLYTE IMBALANCE
     Dosage: 50 MG, DAILY
     Route: 048

REACTIONS (6)
  - Asthenia [Unknown]
  - Pneumonia [Recovered/Resolved]
  - Drug ineffective [Unknown]
  - Intentional product misuse [Unknown]
  - Arthralgia [Unknown]
  - Sinusitis [Unknown]
